FAERS Safety Report 17841405 (Version 4)
Quarter: 2021Q2

REPORT INFORMATION
  Report Type: Spontaneous
  Country: CN (occurrence: CN)
  Receive Date: 20200529
  Receipt Date: 20210608
  Transmission Date: 20210717
  Serious: Yes (Other)
  Sender: FDA-Public Use
  Company Number: CN-ROCHE-2609148

PATIENT
  Age: 56 Year
  Sex: Male

DRUGS (26)
  1. VINDESINE [Concomitant]
     Active Substance: VINDESINE
     Dosage: ON DAY 4
     Dates: start: 20200405, end: 20200409
  2. METHYLPREDNISOLONE SODIUM SUCCINATE. [Concomitant]
     Active Substance: METHYLPREDNISOLONE SODIUM SUCCINATE
     Dates: start: 20200425
  3. DEXAMETHASONE. [Concomitant]
     Active Substance: DEXAMETHASONE
     Indication: DIFFUSE LARGE B-CELL LYMPHOMA
     Dosage: ON DAY 1?5
     Dates: start: 20200405, end: 20200409
  4. MABTHERA [Suspect]
     Active Substance: RITUXIMAB
     Route: 065
     Dates: start: 20200405, end: 20200409
  5. CYCLOPHOSPHAMIDE. [Concomitant]
     Active Substance: CYCLOPHOSPHAMIDE
     Indication: DIFFUSE LARGE B-CELL LYMPHOMA
     Dates: start: 20200407
  6. PIPERACILLINE / TAZOBACTAM [Concomitant]
     Active Substance: PIPERACILLIN SODIUM\TAZOBACTAM SODIUM
  7. CASPOFUNGIN [Concomitant]
     Active Substance: CASPOFUNGIN
  8. MABTHERA [Suspect]
     Active Substance: RITUXIMAB
     Dosage: DAY 0 21 DAYS A CYCLES
     Route: 065
     Dates: start: 20200425
  9. VINDESINE [Concomitant]
     Active Substance: VINDESINE
     Indication: DIFFUSE LARGE B-CELL LYMPHOMA
     Dates: start: 20200407
  10. VINDESINE [Concomitant]
     Active Substance: VINDESINE
     Dates: start: 20200425
  11. VENETOCLAX. [Concomitant]
     Active Substance: VENETOCLAX
     Indication: DIFFUSE LARGE B-CELL LYMPHOMA
     Dosage: STARTED WITH 50MG PER DAY AND INCREASED TO 300MG PER DAY, FOLLOWED BY A DOSE REDUCTION TO 200MG PER
     Dates: start: 20200525
  12. CYCLOPHOSPHAMIDE. [Concomitant]
     Active Substance: CYCLOPHOSPHAMIDE
     Dates: start: 20200425
  13. MOXIFLOXACIN. [Concomitant]
     Active Substance: MOXIFLOXACIN
  14. IMIPENEM AND CILASTATIN [Concomitant]
     Active Substance: CILASTATIN SODIUM\IMIPENEM
  15. TIGECYCLINE. [Concomitant]
     Active Substance: TIGECYCLINE
  16. CYCLOPHOSPHAMIDE. [Concomitant]
     Active Substance: CYCLOPHOSPHAMIDE
     Dosage: 0.3G ON DAY 1?3, 0.45G ON DAY 4
     Dates: start: 20200405, end: 20200409
  17. EPIRUBICIN [Concomitant]
     Active Substance: EPIRUBICIN
     Indication: DIFFUSE LARGE B-CELL LYMPHOMA
     Dates: start: 20200407
  18. CEFDINIR. [Concomitant]
     Active Substance: CEFDINIR
     Route: 048
     Dates: start: 20200425
  19. BORTEZOMIB. [Concomitant]
     Active Substance: BORTEZOMIB
     Indication: DIFFUSE LARGE B-CELL LYMPHOMA
     Dosage: ON DAY 1, 4, 8,11
     Dates: start: 20200425
  20. AZTREONAM. [Concomitant]
     Active Substance: AZTREONAM
  21. MABTHERA [Suspect]
     Active Substance: RITUXIMAB
     Indication: DIFFUSE LARGE B-CELL LYMPHOMA
     Route: 065
     Dates: start: 20200407
  22. PREDNISONE. [Concomitant]
     Active Substance: PREDNISONE
     Indication: DIFFUSE LARGE B-CELL LYMPHOMA
     Dates: start: 20200407
  23. BORTEZOMIB. [Concomitant]
     Active Substance: BORTEZOMIB
     Dosage: ON DAY 1, 4, 8,11
     Dates: start: 20200525
  24. EPIRUBICIN [Concomitant]
     Active Substance: EPIRUBICIN
     Dosage: ON DAY 5
     Dates: start: 20200405, end: 20200409
  25. VORICONAZOLE. [Concomitant]
     Active Substance: VORICONAZOLE
  26. DOXORUBICIN [Concomitant]
     Active Substance: DOXORUBICIN
     Indication: DIFFUSE LARGE B-CELL LYMPHOMA
     Dates: start: 20200425

REACTIONS (3)
  - Myelosuppression [Unknown]
  - Gastrointestinal disorder [Unknown]
  - Pneumonia [Unknown]
